FAERS Safety Report 6524833-0 (Version None)
Quarter: 2009Q4

REPORT INFORMATION
  Report Type: 
  Country: None (occurrence: None)
  Receive Date: 20091214
  Receipt Date: 20090624
  Transmission Date: 20100525
  Serious: Yes (Other)
  Sender: FDA-Public Use
  Company Number: 640687

PATIENT
  Age: 65 Year
  Sex: Male
  Weight: 70.3 kg

DRUGS (2)
  1. PEGASYS [Suspect]
     Indication: HEPATITIS C
     Dosage: 180 UG 1 PER WEEK
     Dates: start: 20090317
  2. COPEGUS [Suspect]
     Indication: HEPATITIS C
     Dosage: 800 MG DAILY
     Dates: start: 20090317

REACTIONS (5)
  - BACK PAIN [None]
  - BLOOD GLUCOSE DECREASED [None]
  - INCREASED UPPER AIRWAY SECRETION [None]
  - MUSCULOSKELETAL PAIN [None]
  - VITREOUS FLOATERS [None]
